FAERS Safety Report 5675023-5 (Version None)
Quarter: 2008Q1

REPORT INFORMATION
  Report Type: 
  Country: None (occurrence: None)
  Receive Date: 20080320
  Receipt Date: 20080317
  Transmission Date: 20080703
  Serious: Yes (Other)
  Sender: FDA-Public Use
  Company Number: PHHY2008JP03358

PATIENT

DRUGS (1)
  1. MELLARIL [Suspect]
     Route: 048

REACTIONS (4)
  - DYSKINESIA [None]
  - MEIGE'S SYNDROME [None]
  - TARDIVE DYSKINESIA [None]
  - TREMOR [None]
